FAERS Safety Report 8954784 (Version 3)
Quarter: 2013Q1

REPORT INFORMATION
  Report Type: Spontaneous
  Country: DE (occurrence: DE)
  Receive Date: 20121207
  Receipt Date: 20130328
  Transmission Date: 20140127
  Serious: Yes (Life-Threatening, Hospitalization)
  Sender: FDA-Public Use
  Company Number: DE-GLAXOSMITHKLINE-D0077979A

PATIENT
  Sex: Male

DRUGS (1)
  1. ALTARGO [Suspect]
     Route: 061

REACTIONS (6)
  - Shock [Recovered/Resolved]
  - Anaphylactic reaction [Recovered/Resolved]
  - Gaze palsy [Recovered/Resolved]
  - Circulatory collapse [Recovered/Resolved]
  - Application site pain [Recovered/Resolved]
  - Application site pruritus [Recovered/Resolved]
